FAERS Safety Report 5928423-X (Version None)
Quarter: 2008Q4

REPORT INFORMATION
  Report Type: 
  Country: None (occurrence: None)
  Receive Date: 20081023
  Receipt Date: 20081010
  Transmission Date: 20090506
  Serious: Yes (Hospitalization, Other)
  Sender: FDA-Public Use
  Company Number: US-ELI_LILLY_AND_COMPANY-US200810003222

PATIENT
  Sex: Female

DRUGS (6)
  1. FORTEO [Suspect]
     Indication: OSTEOPOROSIS
     Dates: start: 20060101, end: 20080501
  2. ASPIRIN [Concomitant]
  3. SYNTHROID [Concomitant]
  4. AVALIDE [Concomitant]
  5. LOPRESSOR [Concomitant]
  6. NORVASC [Concomitant]

REACTIONS (4)
  - CONDUCTION DISORDER [None]
  - FALL [None]
  - LOSS OF CONSCIOUSNESS [None]
  - MUSCLE SPASMS [None]
